FAERS Safety Report 9394773 (Version 1)
Quarter: 2013Q3

REPORT INFORMATION
  Report Type: Report from Study
  Country: FR (occurrence: FR)
  Receive Date: 20130711
  Receipt Date: 20130711
  Transmission Date: 20140515
  Serious: Yes (Other)
  Sender: FDA-Public Use
  Company Number: FR-BAYER-2013-052399

PATIENT
  Age: 69 Year
  Sex: Male

DRUGS (4)
  1. REGORAFENIB [Suspect]
     Indication: COLORECTAL CANCER METASTATIC
     Dosage: 160 MG/T
     Route: 048
     Dates: start: 20130418, end: 20130424
  2. REGORAFENIB [Suspect]
     Indication: COLORECTAL CANCER METASTATIC
     Dosage: 120 MG/D
     Dates: start: 20130503
  3. LERCANIDIPINE [Concomitant]
     Indication: HYPERTENSION
     Dosage: DAILY DOSE 10 MG
     Route: 048
     Dates: start: 2010, end: 2013
  4. VALSARTAN [Concomitant]
     Indication: HYPERTENSION
     Dosage: DAILY DOSE 80 MG
     Route: 048
     Dates: start: 2010, end: 2013

REACTIONS (2)
  - Pancreatitis [Recovered/Resolved]
  - Lipase increased [None]
